FAERS Safety Report 11733108 (Version 6)
Quarter: 2016Q3

REPORT INFORMATION
  Report Type: Spontaneous
  Country: US (occurrence: US)
  Receive Date: 20151113
  Receipt Date: 20160926
  Transmission Date: 20161109
  Serious: No
  Sender: FDA-Public Use
  Company Number: PHEH2015US023442

PATIENT
  Sex: Female
  Weight: 102.95 kg

DRUGS (9)
  1. ZOFRAN [Suspect]
     Active Substance: ONDANSETRON HYDROCHLORIDE
     Indication: VOMITING IN PREGNANCY
     Route: 048
  2. ONDANSETRON [Suspect]
     Active Substance: ONDANSETRON
     Indication: VOMITING IN PREGNANCY
     Dosage: 4 MG, 1 TO 2 TIMES A DAY
     Route: 065
     Dates: start: 20140323, end: 20140407
  3. ONDANSETRON DR REDDY [Suspect]
     Active Substance: ONDANSETRON
     Dosage: 4 MG,  1 TO 2 TIMES A DAY
     Route: 065
     Dates: start: 20140607, end: 20140619
  4. ONDANSETRONE RANBAXY [Suspect]
     Active Substance: ONDANSETRON HYDROCHLORIDE
     Indication: VOMITING IN PREGNANCY
     Dosage: 4 MG,  1 TO 2 TIMES A DAY
     Route: 065
     Dates: start: 20140806, end: 20140818
  5. ONDANSETRON AUROBINDO [Suspect]
     Active Substance: ONDANSETRON HYDROCHLORIDE
     Indication: VOMITING IN PREGNANCY
     Dosage: 4 MG, 1 TO 2 TIMES A DAY
     Route: 065
     Dates: start: 20140307, end: 20140319
  6. ONDANSETRON AUROBINDO [Suspect]
     Active Substance: ONDANSETRON HYDROCHLORIDE
     Dosage: 4 MG,  1 TO 2 TIMES A DAY
     Route: 065
     Dates: start: 20140504, end: 20140516
  7. ONDANSETRON AUROBINDO [Suspect]
     Active Substance: ONDANSETRON HYDROCHLORIDE
     Dosage: 4 MG,  1 TO 2 TIMES A DAY
     Route: 065
     Dates: start: 20140603, end: 20140615
  8. ONDANSETRON DR REDDY [Suspect]
     Active Substance: ONDANSETRON
     Indication: VOMITING IN PREGNANCY
     Dosage: 4 MG, 1 TO 2 TIMES A DAY
     Route: 065
     Dates: start: 20140406, end: 20140418
  9. ONDANSETRON [Suspect]
     Active Substance: ONDANSETRON
     Indication: VOMITING IN PREGNANCY
     Dosage: 4 MG,  1 TO 2 TIMES A DAY
     Route: 065
     Dates: start: 20140911, end: 20140923

REACTIONS (10)
  - Overweight [Unknown]
  - Product use issue [Unknown]
  - Injury [Unknown]
  - Emotional distress [Unknown]
  - Back injury [Unknown]
  - Intervertebral disc degeneration [Unknown]
  - Maternal exposure during pregnancy [Unknown]
  - Pain [Unknown]
  - Anhedonia [Unknown]
  - Anxiety [Unknown]
